FAERS Safety Report 10270771 (Version 1)
Quarter: 2014Q2

REPORT INFORMATION
  Report Type: Spontaneous
  Country: PL (occurrence: None)
  Receive Date: 20140626
  Receipt Date: 20140626
  Transmission Date: 20141212
  Serious: Yes (Other)
  Sender: FDA-Public Use
  Company Number: VAL_03164_2014

PATIENT
  Age: 51 Year
  Sex: Male

DRUGS (5)
  1. METOPROLOL (METOPROLOL - METOPROLOL TARTRATE) [Suspect]
     Indication: PRODUCT USED FOR UNKNOWN INDICATION
  2. RAMIPRIL [Concomitant]
  3. ATORVASTATIN [Concomitant]
  4. ACETYLSALICYLIC ACID [Concomitant]
  5. METFORMIN [Concomitant]

REACTIONS (6)
  - Psoriasis [None]
  - Skin lesion [None]
  - Rash [None]
  - Pruritus [None]
  - Erythema [None]
  - Skin exfoliation [None]
